FAERS Safety Report 7637326-4 (Version None)
Quarter: 2011Q3

REPORT INFORMATION
  Report Type: 
  Country: None (occurrence: None)
  Receive Date: 20110726
  Receipt Date: 20110509
  Transmission Date: 20111222
  Serious: Yes (Hospitalization)
  Sender: FDA-Public Use
  Company Number: HK-AMGEN-HKGCT2011024470

PATIENT
  Age: 85 Year
  Sex: Female

DRUGS (3)
  1. LASIX [Concomitant]
     Dosage: UNK
  2. PLACEBO [Suspect]
     Indication: CARDIAC FAILURE
     Dates: start: 20100629
  3. BLINDED DARBEPOETIN ALFA [Suspect]
     Indication: CARDIAC FAILURE
     Dates: start: 20100629

REACTIONS (2)
  - CARDIAC FAILURE CONGESTIVE [None]
  - GOUT [None]
